FAERS Safety Report 9007879 (Version 7)
Quarter: 2013Q3

REPORT INFORMATION
  Report Type: Report from Study
  Country: JP (occurrence: JP)
  Receive Date: 20130111
  Receipt Date: 20130815
  Transmission Date: 20140515
  Serious: Yes (Hospitalization)
  Sender: FDA-Public Use
  Company Number: JP-SHIRE-CQT4-2013-00001

PATIENT
  Age: 15 Year
  Sex: Male
  Weight: 49 kg

DRUGS (9)
  1. VELAGLUCERASE ALFA [Suspect]
     Indication: GAUCHER^S DISEASE
     Dosage: 2800 IU, 1X/2WKS (7 VIALS)
     Route: 041
     Dates: start: 20120609
  2. NADIFLOXACIN [Concomitant]
     Indication: ACNE
     Dosage: UNK
     Route: 062
     Dates: start: 201107
  3. PROCATEROL HYDROCHLORIDE [Concomitant]
     Indication: OROPHARYNGEAL PAIN
     Dosage: UNK
     Route: 048
     Dates: start: 20121208, end: 20121215
  4. CARBOCISTEINE [Concomitant]
     Indication: OROPHARYNGEAL PAIN
     Dosage: UNK
     Route: 048
     Dates: start: 20121208, end: 20121215
  5. CARBOCISTEINE [Concomitant]
     Dosage: UNK
  6. CLARITHROMYCIN [Concomitant]
     Indication: NASOPHARYNGITIS
     Dosage: UNK
     Route: 048
     Dates: start: 20121219, end: 20121226
  7. PROCATEROL HYDROCHLORIDE [Concomitant]
     Indication: NASOPHARYNGITIS
     Dosage: UNK
     Route: 048
     Dates: start: 20121219, end: 20121226
  8. CARBOCISTEINE [Concomitant]
     Indication: NASOPHARYNGITIS
     Dosage: UNK
     Route: 048
     Dates: start: 20121219, end: 20121226
  9. AMOXICILLIN [Concomitant]
     Indication: OROPHARYNGEAL PAIN
     Dosage: UNK
     Route: 048
     Dates: start: 20121208, end: 20121215

REACTIONS (1)
  - Retinal detachment [Recovering/Resolving]
